FAERS Safety Report 18477184 (Version 1)
Quarter: 2020Q4

REPORT INFORMATION
  Report Type: Spontaneous
  Country: US (occurrence: US)
  Receive Date: 20201107
  Receipt Date: 20201107
  Transmission Date: 20210114
  Serious: No
  Sender: FDA-Public Use
  Company Number: US-PERRIGO-20US011503

PATIENT
  Age: 85 Year
  Sex: Female
  Weight: 39.46 kg

DRUGS (2)
  1. ERYTHROMYCIN. [Suspect]
     Active Substance: ERYTHROMYCIN
     Dosage: QUARTER INCH RIBBON, QHS
     Route: 047
     Dates: start: 20200702, end: 202007
  2. ERYTHROMYCIN. [Suspect]
     Active Substance: ERYTHROMYCIN
     Indication: EYE INFECTION
     Dosage: QUARTY INCH RIBBON, QHS
     Route: 047
     Dates: start: 20200520, end: 2020

REACTIONS (4)
  - Hypersensitivity [Recovered/Resolved]
  - Eye irritation [Recovered/Resolved]
  - Eye pruritus [Recovered/Resolved]
  - Vision blurred [Recovered/Resolved]

NARRATIVE: CASE EVENT DATE: 20200526
